FAERS Safety Report 6717162-3 (Version None)
Quarter: 2010Q2

REPORT INFORMATION
  Report Type: 
  Country: None (occurrence: None)
  Receive Date: 20100505
  Receipt Date: 20100420
  Transmission Date: 20101027
  Serious: Yes (Other)
  Sender: FDA-Public Use
  Company Number: 2010-1334

PATIENT
  Age: 56 Year
  Sex: Male

DRUGS (4)
  1. BOTULINUM TOXIN TYPE A [Suspect]
     Indication: BALLISMUS
     Dosage: 500 UNITS (500 UNITS,)
  2. HALOPERIDOL [Suspect]
     Indication: BALLISMUS
     Dosage: 9 MG (3 MG, 3 IN 1 D),
  3. ORPHENADRINE CITRATE [Suspect]
     Indication: BALLISMUS
     Dosage: 150 MG (50 MG, 3 IN 1 D),
  4. TETRABENAZINE (TETRABENAZINE) [Suspect]
     Indication: BALLISMUS
     Dosage: 112.5 MG (37.5 MG, 3 IN 1 D),

REACTIONS (6)
  - CHOREA [None]
  - DRUG INEFFECTIVE [None]
  - DYSTONIA [None]
  - HAEMOSIDEROSIS [None]
  - INJURY [None]
  - NUCLEAR MAGNETIC RESONANCE IMAGING BRAIN ABNORMAL [None]
